FAERS Safety Report 14407695 (Version 1)
Quarter: 2018Q1

REPORT INFORMATION
  Report Type: Spontaneous
  Country: US (occurrence: US)
  Receive Date: 20180117
  Receipt Date: 20180117
  Transmission Date: 20180509
  Serious: No
  Sender: FDA-Public Use
  Company Number: None

PATIENT
  Age: 41 Year
  Sex: Female

DRUGS (1)
  1. LEVONOR/ETHINYL ESTRADIOL 28^S [Suspect]
     Active Substance: ETHINYL ESTRADIOL\LEVONORGESTREL
     Indication: CONTRACEPTION
     Route: 048

REACTIONS (2)
  - Product substitution issue [None]
  - Nausea [None]

NARRATIVE: CASE EVENT DATE: 20171006
